FAERS Safety Report 11176619 (Version 1)
Quarter: 2015Q2

REPORT INFORMATION
  Report Type: Spontaneous
  Country: US (occurrence: None)
  Receive Date: 20150609
  Receipt Date: 20150609
  Transmission Date: 20150821
  Serious: Yes (Other)
  Sender: FDA-Public Use
  Company Number: None

PATIENT
  Age: 64 Year
  Sex: Male

DRUGS (11)
  1. LIDOCAINE 1%, 50 ML VIAL [Suspect]
     Active Substance: LIDOCAINE
     Indication: BURSITIS
     Route: 048
     Dates: start: 20150527
  2. ASPIRIN. [Concomitant]
     Active Substance: ASPIRIN
  3. RIVAROXABAN [Concomitant]
     Active Substance: RIVAROXABAN
  4. NORCO [Concomitant]
     Active Substance: ACETAMINOPHEN\HYDROCODONE BITARTRATE
  5. MELOXICAM. [Concomitant]
     Active Substance: MELOXICAM
  6. DEPO-MEDROL [Suspect]
     Active Substance: METHYLPREDNISOLONE ACETATE
     Indication: BURSITIS
     Dates: start: 20150527
  7. GABAPENTIN. [Concomitant]
     Active Substance: GABAPENTIN
  8. IBUPROFEN. [Concomitant]
     Active Substance: IBUPROFEN
  9. SIMVASTATIN. [Concomitant]
     Active Substance: SIMVASTATIN
  10. MARCAINE [Suspect]
     Active Substance: BUPIVACAINE HYDROCHLORIDE
     Indication: BURSITIS
     Dates: start: 20150527
  11. MULTIVITAMIN [Concomitant]
     Active Substance: VITAMINS

REACTIONS (2)
  - Arthritis bacterial [None]
  - Abscess [None]

NARRATIVE: CASE EVENT DATE: 20150527
